FAERS Safety Report 9097992 (Version 1)
Quarter: 2013Q1

REPORT INFORMATION
  Report Type: Spontaneous
  Country: US (occurrence: US)
  Receive Date: 20130212
  Receipt Date: 20130212
  Transmission Date: 20140127
  Serious: No
  Sender: FDA-Public Use
  Company Number: US-PFIZER INC-2013053394

PATIENT
  Age: 46 Year
  Sex: Female
  Weight: 68.93 kg

DRUGS (3)
  1. LYRICA [Suspect]
     Indication: FIBROMYALGIA
     Dosage: 50 MG, 2X/DAY
     Dates: start: 201106
  2. XANAX [Concomitant]
     Indication: ANXIETY
     Dosage: 0.5 MG, (ONE OR TWO TIMES A DAY) AS NEEDED
  3. HYDROCODONE [Concomitant]
     Indication: PAIN
     Dosage: 1 DF, (EVERY 4-6 HOURS) AS NEEDED

REACTIONS (1)
  - Sleep disorder [Not Recovered/Not Resolved]
